FAERS Safety Report 5753913-2 (Version None)
Quarter: 2008Q2

REPORT INFORMATION
  Report Type: 
  Country: None (occurrence: None)
  Receive Date: 20080530
  Receipt Date: 20080528
  Transmission Date: 20081010
  Serious: Yes (Other)
  Sender: FDA-Public Use
  Company Number: B0522683A

PATIENT
  Age: 53 Year
  Sex: Male

DRUGS (1)
  1. SAWACILLIN [Suspect]
     Indication: DRUG USE FOR UNKNOWN INDICATION
     Route: 065
     Dates: start: 20070612, end: 20070619

REACTIONS (1)
  - IRON DEFICIENCY ANAEMIA [None]
